FAERS Safety Report 7858721-4 (Version None)
Quarter: 2011Q3

REPORT INFORMATION
  Report Type: 
  Country: None (occurrence: None)
  Receive Date: 20110923
  Receipt Date: 20100315
  Transmission Date: 20111222
  Serious: No
  Sender: FDA-Public Use
  Company Number: 10-007

PATIENT

DRUGS (2)
  1. CANDIDA ALBICANS [Suspect]
     Indication: OFF LABEL USE
     Dosage: 1:1000W/V, VARIOUS
     Dates: start: 20100312
  2. CANDIDA ALBICANS [Suspect]
     Indication: SKIN PAPILLOMA
     Dosage: 1:1000W/V, VARIOUS
     Dates: start: 20100312

REACTIONS (3)
  - NO ADVERSE EVENT [None]
  - WOUND SECRETION [None]
  - ERYTHEMA [None]
